FAERS Safety Report 10915820 (Version 1)
Quarter: 2015Q1

REPORT INFORMATION
  Report Type: Spontaneous
  Country: DE (occurrence: DE)
  Receive Date: 20150316
  Receipt Date: 20150316
  Transmission Date: 20150721
  Serious: Yes (Hospitalization)
  Sender: FDA-Public Use
  Company Number: DE-ASTRAZENECA-2015SE22901

PATIENT
  Age: 62 Year

DRUGS (2)
  1. LIDOCAINE 1% [Suspect]
     Active Substance: LIDOCAINE
     Indication: VENTRICULAR FIBRILLATION
     Route: 053
  2. LIDOCAINE 2% [Suspect]
     Active Substance: LIDOCAINE
     Indication: VENTRICULAR FIBRILLATION
     Dosage: CONTINUOUS 20 ML/H
     Route: 042

REACTIONS (2)
  - Horner^s syndrome [Unknown]
  - Seizure [Unknown]
